FAERS Safety Report 17710506 (Version 1)
Quarter: 2020Q2

REPORT INFORMATION
  Report Type: Spontaneous
  Country: US (occurrence: US)
  Receive Date: 20200424
  Receipt Date: 20200424
  Transmission Date: 20200714
  Serious: No
  Sender: FDA-Public Use
  Company Number: None

PATIENT
  Age: 64 Year
  Sex: Female

DRUGS (1)
  1. TALTZ [Suspect]
     Active Substance: IXEKIZUMAB
     Route: 058
     Dates: start: 20200423

REACTIONS (3)
  - Wrong technique in device usage process [None]
  - Injection site irritation [None]
  - Device malfunction [None]

NARRATIVE: CASE EVENT DATE: 20200423
